FAERS Safety Report 18855669 (Version 1)
Quarter: 2021Q1

REPORT INFORMATION
  Report Type: Other
  Country: AU (occurrence: AU)
  Receive Date: 20210205
  Receipt Date: 20210205
  Transmission Date: 20210420
  Serious: Yes (Hospitalization)
  Sender: FDA-Public Use
  Company Number: AU-ETHYPHARM-2021000204

PATIENT
  Age: 65 Year
  Sex: Female

DRUGS (14)
  1. BUPRENORPHINE. [Suspect]
     Active Substance: BUPRENORPHINE
     Indication: DRUG USE DISORDER
     Dosage: 34 HOURS AFTER ADMISSION
     Route: 060
     Dates: start: 2017
  2. KETAMINE [Concomitant]
     Active Substance: KETAMINE
     Indication: PAIN MANAGEMENT
     Route: 065
     Dates: start: 201410
  3. KETAMINE [Concomitant]
     Active Substance: KETAMINE
     Indication: PAIN MANAGEMENT
     Dosage: 24 MG/HR
     Route: 065
     Dates: start: 2017
  4. DIAZEPAM. [Concomitant]
     Active Substance: DIAZEPAM
     Indication: ANXIETY
     Dosage: 10 MG TDS
     Route: 065
     Dates: start: 2017
  5. KETAMINE [Concomitant]
     Active Substance: KETAMINE
     Indication: PAIN MANAGEMENT
     Dosage: 6 MG/HR
     Route: 065
     Dates: start: 201403
  6. BUPRENORPHINE. [Suspect]
     Active Substance: BUPRENORPHINE
     Indication: DRUG USE DISORDER
     Dosage: 102 HOURS AFTER ADMISSION
     Route: 060
     Dates: start: 2017
  7. CLONIDINE. [Concomitant]
     Active Substance: CLONIDINE
     Indication: PRODUCT USED FOR UNKNOWN INDICATION
     Dosage: AS REQUIRED ? THREE TIMES A DAY (TDS), TOTAL 300 TO 600 MCG/DAY
     Route: 048
     Dates: start: 201403
  8. BUPRENORPHINE. [Suspect]
     Active Substance: BUPRENORPHINE
     Indication: DRUG USE DISORDER
     Dosage: 32 HOURS AFTER ADMISSION
     Route: 060
     Dates: start: 2017
  9. BUPRENORPHINE. [Suspect]
     Active Substance: BUPRENORPHINE
     Indication: DRUG USE DISORDER
     Dosage: OVER THE SUBSEQUENT WEEK
     Route: 060
     Dates: start: 2017
  10. CLONIDINE. [Concomitant]
     Active Substance: CLONIDINE
     Indication: PRODUCT USED FOR UNKNOWN INDICATION
     Dosage: TWICE A DAY, TOTAL DOSES OF 100 MCG/DAY
     Route: 048
     Dates: start: 201410
  11. BUPRENORPHINE. [Suspect]
     Active Substance: BUPRENORPHINE
     Indication: DRUG USE DISORDER
     Route: 060
     Dates: start: 201403
  12. BUPRENORPHINE. [Suspect]
     Active Substance: BUPRENORPHINE
     Indication: DRUG USE DISORDER
     Route: 065
     Dates: start: 201410
  13. BUPRENORPHINE. [Suspect]
     Active Substance: BUPRENORPHINE
     Indication: DRUG USE DISORDER
     Dosage: 30 HOURS AFTER ADMISSION
     Route: 060
     Dates: start: 2017
  14. KETAMINE [Concomitant]
     Active Substance: KETAMINE
     Indication: PAIN MANAGEMENT
     Dosage: 2 MG/HR
     Route: 065
     Dates: start: 2017

REACTIONS (2)
  - Stress cardiomyopathy [Recovered/Resolved]
  - Drug withdrawal syndrome [Recovered/Resolved]
